FAERS Safety Report 11412104 (Version 3)
Quarter: 2015Q4

REPORT INFORMATION
  Report Type: Report from Study
  Country: US (occurrence: US)
  Receive Date: 20150824
  Receipt Date: 20151005
  Transmission Date: 20160304
  Serious: Yes (Hospitalization, Other)
  Sender: FDA-Public Use
  Company Number: US-GILEAD-2015-0168533

PATIENT
  Age: 46 Year
  Sex: Female

DRUGS (4)
  1. COUMADIN [Concomitant]
     Active Substance: WARFARIN SODIUM
  2. AMBRISENTAN [Suspect]
     Active Substance: AMBRISENTAN
     Indication: PULMONARY HYPERTENSION
     Dosage: 10 MG, QD
     Route: 065
     Dates: start: 20130325
  3. ADCIRCA [Concomitant]
     Active Substance: TADALAFIL
  4. VELETRI [Concomitant]
     Active Substance: EPOPROSTENOL

REACTIONS (7)
  - Haemorrhagic anaemia [Unknown]
  - Fatigue [Unknown]
  - Right ventricular failure [Unknown]
  - Unevaluable event [Unknown]
  - Loss of consciousness [Unknown]
  - Pulmonary arterial hypertension [Unknown]
  - Vaginal haemorrhage [Unknown]

NARRATIVE: CASE EVENT DATE: 201506
